FAERS Safety Report 4625865-X (Version None)
Quarter: 2005Q1

REPORT INFORMATION
  Report Type: 
  Country: None (occurrence: None)
  Receive Date: 20050330
  Receipt Date: 20050324
  Transmission Date: 20050727
  Serious: Yes (Other)
  Sender: FDA-Public Use
  Company Number: 200510079BYL

PATIENT
  Age: 80 Year
  Sex: Male
  Weight: 70.8 kg

DRUGS (7)
  1. ASPIRIN [Suspect]
     Indication: ATRIAL FIBRILLATION
     Dosage: 100 MG, QD, ORAL
     Route: 048
     Dates: start: 20040313, end: 20050107
  2. NIVADIL [Concomitant]
  3. NU-LOTAN [Concomitant]
  4. ALLOPURINOL [Concomitant]
  5. MUCODYNE [Concomitant]
  6. THEO-DUR [Concomitant]
  7. CIBENOL [Concomitant]

REACTIONS (2)
  - ALOPECIA [None]
  - SEBORRHOEIC DERMATITIS [None]
